FAERS Safety Report 8529591-6 (Version None)
Quarter: 2012Q3

REPORT INFORMATION
  Report Type: 
  Country: None (occurrence: None)
  Receive Date: 20120723
  Receipt Date: 20120710
  Transmission Date: 20120928
  Serious: Yes (Other)
  Sender: FDA-Public Use
  Company Number: JP-VERTEX PHARMACEUTICALS INC.-AE-2012-010265

PATIENT
  Age: 58 Year
  Sex: Male

DRUGS (9)
  1. LOSARTAN POTASSIUM AND HYDROCHLOROTHIAZIDE [Concomitant]
     Route: 048
     Dates: end: 20120607
  2. PEGINTERFERON ALFA-2B [Concomitant]
     Indication: HEPATITIS C
     Route: 058
     Dates: start: 20120515
  3. FAMOTIDINE [Concomitant]
     Route: 048
     Dates: start: 20120518
  4. TELAVIC (TELAPREVIR) [Suspect]
     Indication: HEPATITIS C
     Route: 048
     Dates: start: 20120515
  5. RIBAVIRIN [Concomitant]
     Indication: HEPATITIS C
     Route: 048
     Dates: start: 20120515
  6. DIOVAN [Concomitant]
     Route: 048
     Dates: end: 20120615
  7. URSO 250 [Concomitant]
     Route: 048
     Dates: end: 20120524
  8. MUCOSTA [Concomitant]
     Route: 048
     Dates: start: 20120518
  9. MARZULENE S [Concomitant]
     Route: 048
     Dates: start: 20120518

REACTIONS (1)
  - RETINOPATHY [None]
